FAERS Safety Report 8179338-0 (Version None)
Quarter: 2012Q1

REPORT INFORMATION
  Report Type: 
  Country: None (occurrence: None)
  Receive Date: 20120302
  Receipt Date: 20120226
  Transmission Date: 20120608
  Serious: Yes (Hospitalization)
  Sender: FDA-Public Use
  Company Number: ES-ABBOTT-11P-144-0886075-00

PATIENT
  Age: 55 Year
  Sex: Female
  Weight: 75 kg

DRUGS (4)
  1. HUMIRA [Suspect]
     Indication: CROHN'S DISEASE
     Dosage: 160MG ONCE (WEEK 0)
     Route: 058
     Dates: start: 20111101, end: 20111101
  2. HUMIRA [Suspect]
     Route: 058
     Dates: end: 20120101
  3. HUMIRA [Suspect]
     Dosage: 80MG ONCE (WEEK 2)
     Route: 058
  4. SULFASALAZINE [Suspect]
     Indication: CROHN'S DISEASE
     Dosage: STOPPED AFTER HUMIRA WITHDRAWN
     Route: 048
     Dates: end: 20120101

REACTIONS (5)
  - LUNG DISORDER [None]
  - LUNG INFILTRATION [None]
  - COUGH [None]
  - DYSPNOEA [None]
  - INTERSTITIAL LUNG DISEASE [None]
